FAERS Safety Report 22939250 (Version 2)
Quarter: 2023Q4

REPORT INFORMATION
  Report Type: Spontaneous
  Country: CA (occurrence: CA)
  Receive Date: 20230913
  Receipt Date: 20231101
  Transmission Date: 20240109
  Serious: Yes (Other)
  Sender: FDA-Public Use
  Company Number: CA-PFIZER INC-202300278877

PATIENT
  Age: 38 Year
  Sex: Male

DRUGS (8)
  1. ABRILADA [Suspect]
     Active Substance: ADALIMUMAB-AFZB
     Indication: Crohn^s disease
     Dosage: 1 DF,PREFILLED PEN. WEEK 0 160MG, WEEK 2 80 MG, THEN 40 MG EVERY OTHER WEEK STARTING AT WEEK 4
     Dates: start: 20230620
  2. ABRILADA [Suspect]
     Active Substance: ADALIMUMAB-AFZB
     Dosage: 1 DF,PREFILLED PEN. WEEK 0 160MG, WEEK 2 80 MG, THEN 40 MG EVERY OTHER WEEK STARTING AT WEEK 4
     Dates: start: 2023
  3. ABRILADA [Suspect]
     Active Substance: ADALIMUMAB-AFZB
     Dosage: 40 MG, WEEKLY PREFILLED PEN. NOT YET STARTED
     Route: 058
  4. ADVIL [Concomitant]
     Active Substance: IBUPROFEN
     Dosage: UNK
  5. CIPROFLOXACIN [Concomitant]
     Active Substance: CIPROFLOXACIN
     Dosage: UNK
  6. DILAUDID [Concomitant]
     Active Substance: HYDROMORPHONE HYDROCHLORIDE
     Dosage: UNK
  7. METRONIDAZOLE [Concomitant]
     Active Substance: METRONIDAZOLE
     Dosage: UNK
  8. TYLENOL [Concomitant]
     Active Substance: ACETAMINOPHEN
     Dosage: UNK

REACTIONS (4)
  - Surgery [Unknown]
  - Drug level decreased [Unknown]
  - Off label use [Unknown]
  - Condition aggravated [Unknown]

NARRATIVE: CASE EVENT DATE: 20230823
